FAERS Safety Report 21815688 (Version 1)
Quarter: 2023Q1

REPORT INFORMATION
  Report Type: Spontaneous
  Country: US (occurrence: None)
  Receive Date: 20230103
  Receipt Date: 20230103
  Transmission Date: 20230417
  Serious: Yes (Death)
  Sender: FDA-Public Use
  Company Number: None

PATIENT
  Age: 65 Year
  Sex: Female
  Weight: 62.6 kg

DRUGS (18)
  1. LENALIDOMIDE [Suspect]
     Active Substance: LENALIDOMIDE
     Indication: Plasma cell myeloma
     Dosage: OTHER FREQUENCY : 21DON7DOFF;?
     Route: 048
  2. ACETAMINOPHEN [Concomitant]
  3. ALBUTEROL [Concomitant]
  4. BACTRIUM DS [Concomitant]
  5. DEXAMETHASONE [Concomitant]
  6. DIPHENHYDRAMINE [Concomitant]
  7. ELIQUIS [Concomitant]
  8. FAMOTIDINE [Concomitant]
  9. GABAPENTIN [Concomitant]
  10. HYDROXYUREA [Concomitant]
  11. METCLOPRAMIDE [Concomitant]
  12. MONTELUKAST [Concomitant]
  13. ONDANSETRON [Concomitant]
  14. OXYCODONE [Concomitant]
  15. POTASSIUM CHLORIDE [Concomitant]
  16. PULMICORT [Concomitant]
  17. SPIRIVA [Concomitant]
  18. VALTREX [Concomitant]

REACTIONS (1)
  - Death [None]

NARRATIVE: CASE EVENT DATE: 20221212
